FAERS Safety Report 12113178 (Version 1)
Quarter: 2016Q1

REPORT INFORMATION
  Report Type: Spontaneous
  Country: US (occurrence: US)
  Receive Date: 20160225
  Receipt Date: 20160225
  Transmission Date: 20160526
  Serious: Yes (Life-Threatening, Hospitalization, Other)
  Sender: FDA-Public Use
  Company Number: US-JNJFOC-20160216583

PATIENT
  Age: 6 Month
  Sex: Male

DRUGS (1)
  1. VISINE [Suspect]
     Active Substance: TETRAHYDROZOLINE HYDROCHLORIDE
     Indication: ACCIDENTAL EXPOSURE TO PRODUCT
     Dosage: ONE TIME
     Route: 048
     Dates: start: 20150817, end: 20150817

REACTIONS (5)
  - Overdose [Unknown]
  - Accidental exposure to product [Unknown]
  - Asthenia [Unknown]
  - Respiratory arrest [Unknown]
  - Heart rate decreased [Unknown]

NARRATIVE: CASE EVENT DATE: 20150817
